FAERS Safety Report 24002964 (Version 1)
Quarter: 2024Q2

REPORT INFORMATION
  Report Type: Spontaneous
  Country: US (occurrence: US)
  Receive Date: 20240624
  Receipt Date: 20240624
  Transmission Date: 20240716
  Serious: Yes (Other)
  Sender: FDA-Public Use
  Company Number: US-SA-2024SA182466

PATIENT
  Age: 71 Year
  Sex: Female

DRUGS (1)
  1. DUPIXENT [Suspect]
     Active Substance: DUPILUMAB
     Indication: Dermatitis atopic
     Dosage: 300 MG, QOW
     Route: 058

REACTIONS (10)
  - Rheumatoid arthritis [Not Recovered/Not Resolved]
  - Hepatic cirrhosis [Unknown]
  - Tremor [Unknown]
  - Musculoskeletal stiffness [Unknown]
  - Adrenal disorder [Unknown]
  - Gait disturbance [Unknown]
  - Balance disorder [Unknown]
  - Fall [Unknown]
  - Injury [Unknown]
  - Aphasia [Unknown]

NARRATIVE: CASE EVENT DATE: 20240101
